FAERS Safety Report 7278133-4 (Version None)
Quarter: 2011Q1

REPORT INFORMATION
  Report Type: 
  Country: None (occurrence: None)
  Receive Date: 20110207
  Receipt Date: 20110128
  Transmission Date: 20110831
  Serious: Yes (Hospitalization)
  Sender: FDA-Public Use
  Company Number: A0788948A

PATIENT
  Age: 67 Year
  Sex: Male

DRUGS (5)
  1. AVANDAMET [Suspect]
     Route: 048
     Dates: start: 20070301, end: 20070501
  2. ASPIRIN [Concomitant]
  3. AVALIDE [Concomitant]
  4. AVANDIA [Suspect]
     Dosage: 8MG PER DAY
     Route: 048
     Dates: start: 20050101, end: 20070301
  5. FISH OIL [Concomitant]

REACTIONS (1)
  - MYOCARDIAL INFARCTION [None]
